FAERS Safety Report 13526901 (Version 2)
Quarter: 2021Q3

REPORT INFORMATION
  Report Type: Spontaneous
  Country: US (occurrence: US)
  Receive Date: 20170509
  Receipt Date: 20210806
  Transmission Date: 20211014
  Serious: Yes (Other)
  Sender: FDA-Public Use
  Company Number: US-TEVA-766022USA

PATIENT
  Age: 54 Year
  Sex: Female

DRUGS (8)
  1. HEPARIN [Concomitant]
     Active Substance: HEPARIN SODIUM
     Dosage: POST PROCEDURE: 5000 UNITS
     Route: 058
  2. MELPHALAN HYDROCHLORIDE. [Suspect]
     Active Substance: MELPHALAN HYDROCHLORIDE
     Indication: MALIGNANT MELANOMA
     Dosage: 10MG/L
     Route: 050
  3. ASPIRIN. [Concomitant]
     Active Substance: ASPIRIN
     Indication: ANTICOAGULANT THERAPY
     Dosage: PRE?PROCEDURE: 325MG
     Route: 048
  4. HEPARIN [Concomitant]
     Active Substance: HEPARIN SODIUM
     Indication: ANTICOAGULANT THERAPY
     Dosage: DURING PROCEDURE: 5000 UNITS, ADDITIONAL HEPARIN ADMINISTERED TO MAINTAIN CLOTTING TIME ABOVE 300SEC
     Route: 042
  5. HEPARIN [Concomitant]
     Active Substance: HEPARIN SODIUM
     Indication: ANTICOAGULANT THERAPY
     Dosage: PRE?PROCEDURE: 5000 UNITS
     Route: 058
  6. HEPARIN, SODIUM CHLORIDE [Concomitant]
     Indication: ANTICOAGULANT THERAPY
     Dosage: 5000IU/L
     Route: 050
  7. ASPIRIN. [Concomitant]
     Active Substance: ASPIRIN
     Dosage: POST?OPERATIVE: 150MG DAILY FOR THREE MONTHS
     Route: 048
  8. PAPAVERINE [Concomitant]
     Active Substance: PAPAVERINE
     Dosage: 30MG (1ML)
     Route: 050

REACTIONS (1)
  - Compartment syndrome [Unknown]
